FAERS Safety Report 4731420-3 (Version None)
Quarter: 2005Q3

REPORT INFORMATION
  Report Type: 
  Country: None (occurrence: None)
  Receive Date: 20050719
  Receipt Date: 20040601
  Transmission Date: 20060218
  Serious: Yes (Hospitalization)
  Sender: FDA-Public Use
  Company Number: 199202

PATIENT
  Age: 60 Year
  Sex: Female
  Weight: 90.7194 kg

DRUGS (12)
  1. AVONEX [Suspect]
     Indication: MULTIPLE SCLEROSIS
     Dosage: 30 UG;QW;IM
     Route: 030
     Dates: start: 20030901
  2. BACLOFEN [Concomitant]
  3. GLYBURIDE [Concomitant]
  4. GLUCOPHAGE [Concomitant]
  5. OXYBUTYNIN [Concomitant]
  6. PRAVACHOL [Concomitant]
  7. TOPROL-XL [Concomitant]
  8. RELAFEN [Concomitant]
  9. DITROPAN [Concomitant]
  10. PLAVIX [Concomitant]
  11. ASPIRIN [Concomitant]
  12. TRIMETHOPRIM + SULFAMETHOXAZOLE [Concomitant]

REACTIONS (2)
  - CELLULITIS [None]
  - CYSTITIS [None]
